FAERS Safety Report 6005807-5 (Version None)
Quarter: 2008Q4

REPORT INFORMATION
  Report Type: 
  Country: None (occurrence: None)
  Receive Date: 20081217
  Receipt Date: 20081209
  Transmission Date: 20090506
  Serious: Yes (Other)
  Sender: FDA-Public Use
  Company Number: DE-BAYER-200832512GPV

PATIENT
  Age: 51 Year
  Sex: Female

DRUGS (3)
  1. CIPROFLOXACIN HYDROCHLORIDE [Suspect]
     Indication: PERIODONTITIS
     Dosage: UNIT DOSE: 500 MG
     Route: 048
     Dates: start: 20080922, end: 20080926
  2. CALCIUM WITH VITAMIN D [Concomitant]
     Indication: OSTEOPOROSIS
     Route: 065
  3. METRONIDAZOLE [Concomitant]
     Indication: BACTERIAL CULTURE
     Dosage: UNIT DOSE: 400 MG
     Route: 048
     Dates: start: 20080922, end: 20080928

REACTIONS (3)
  - DIARRHOEA [None]
  - DIARRHOEA HAEMORRHAGIC [None]
  - TENDON PAIN [None]
